FAERS Safety Report 21172287 (Version 3)
Quarter: 2022Q3

REPORT INFORMATION
  Report Type: Spontaneous
  Country: US (occurrence: US)
  Receive Date: 20220804
  Receipt Date: 20220816
  Transmission Date: 20221027
  Serious: No
  Sender: FDA-Public Use
  Company Number: US-ALKERMES INC.-ALK-2022-003754

PATIENT
  Sex: Male

DRUGS (4)
  1. ARISTADA [Suspect]
     Active Substance: ARIPIPRAZOLE LAUROXIL
     Indication: Schizophrenia
     Dosage: 662 MILLIGRAM, QMO
     Route: 030
     Dates: start: 20220729
  2. ARISTADA [Suspect]
     Active Substance: ARIPIPRAZOLE LAUROXIL
     Dosage: 662 MILLIGRAM, QMO
     Route: 030
     Dates: start: 20220621, end: 20220621
  3. ARISTADA [Suspect]
     Active Substance: ARIPIPRAZOLE LAUROXIL
     Dosage: 662 MILLIGRAM, QMO
     Route: 030
  4. ADDERALL [Concomitant]
     Active Substance: AMPHETAMINE ASPARTATE\AMPHETAMINE SULFATE\DEXTROAMPHETAMINE SACCHARATE\DEXTROAMPHETAMINE SULFATE
     Indication: Attention deficit hyperactivity disorder
     Dosage: UNK
     Route: 065

REACTIONS (9)
  - Product administered at inappropriate site [Not Recovered/Not Resolved]
  - Wrong technique in product usage process [Recovered/Resolved]
  - Lack of administration site rotation [Recovered/Resolved]
  - Injection site reaction [Unknown]
  - Injection site paraesthesia [Recovered/Resolved]
  - Injection site pain [Recovered/Resolved]
  - Injection site hypoaesthesia [Recovered/Resolved]
  - Injection site discomfort [Unknown]
  - Needle issue [Recovered/Resolved]

NARRATIVE: CASE EVENT DATE: 20220101
